FAERS Safety Report 6824871-4 (Version None)
Quarter: 2010Q3

REPORT INFORMATION
  Report Type: 
  Country: None (occurrence: None)
  Receive Date: 20100708
  Receipt Date: 20070105
  Transmission Date: 20110219
  Serious: No
  Sender: FDA-Public Use
  Company Number: US-PFIZER INC-2007002864

PATIENT
  Sex: Female
  Weight: 90.72 kg

DRUGS (5)
  1. CHANTIX [Suspect]
     Indication: SMOKING CESSATION THERAPY
     Dates: start: 20070105, end: 20070105
  2. HYDROCHLOROTHIAZIDE [Concomitant]
  3. BISOPROLOL [Concomitant]
  4. PROTONIX [Concomitant]
  5. RANITIDINE [Concomitant]

REACTIONS (4)
  - HEART RATE INCREASED [None]
  - LOSS OF CONSCIOUSNESS [None]
  - NAUSEA [None]
  - TREMOR [None]
